FAERS Safety Report 7486497-1 (Version None)
Quarter: 2011Q2

REPORT INFORMATION
  Report Type: 
  Country: None (occurrence: None)
  Receive Date: 20110517
  Receipt Date: 20110505
  Transmission Date: 20111010
  Serious: Yes (Other)
  Sender: FDA-Public Use
  Company Number: PHHY2011VE39666

PATIENT
  Sex: Male

DRUGS (6)
  1. SANDOSTATIN [Suspect]
     Indication: NEUROENDOCRINE TUMOUR
  2. ETOPOSIDE [Concomitant]
     Dosage: 100 MG, UNK
  3. CISPLATIN [Concomitant]
     Indication: DIZZINESS
     Dosage: 50 MG/50ML
  4. PALONOSETRON [Concomitant]
     Dosage: 0.25 MG/5ML
  5. EMEND [Concomitant]
     Dosage: 125 MG, UNK
  6. SANDOSTATIN [Suspect]
     Dates: start: 20090101, end: 20090301

REACTIONS (2)
  - HEPATIC NEOPLASM [None]
  - INTESTINAL OBSTRUCTION [None]
